FAERS Safety Report 20616034 (Version 1)
Quarter: 2022Q1

REPORT INFORMATION
  Report Type: Spontaneous
  Country: CN (occurrence: CN)
  Receive Date: 20220321
  Receipt Date: 20220321
  Transmission Date: 20220423
  Serious: Yes (Other)
  Sender: FDA-Public Use
  Company Number: CN-NOVARTISPH-NVSC2022CN062240

PATIENT
  Age: 54 Year
  Sex: Female

DRUGS (3)
  1. CYCLOSPORINE [Suspect]
     Active Substance: CYCLOSPORINE
     Indication: Product used for unknown indication
     Dosage: 4 DOSAGE FORM, QD(2 PILLS IN THE MORNING AND 2 PILLS IN THE EVENING, STREGNTH 25 MG))
     Route: 048
  2. CYCLOSPORINE [Suspect]
     Active Substance: CYCLOSPORINE
     Dosage: (1 PILL OF NEORAL 10MG IN THE MORNING AND 1 PILL OF NEORAL 10MG IN THE EVENING)
     Route: 048
  3. MYFORTIC [Suspect]
     Active Substance: MYCOPHENOLATE SODIUM
     Indication: Product used for unknown indication
     Dosage: 4 DOSAGE FORM, QD (2 TABLETS IN THE MORNING AND 2 TABLETS IN THE EVENING EVERY DAY)
     Route: 048

REACTIONS (2)
  - Kidney transplant rejection [Unknown]
  - Drug ineffective [Unknown]
